FAERS Safety Report 14711421 (Version 3)
Quarter: 2018Q2

REPORT INFORMATION
  Report Type: Spontaneous
  Country: US (occurrence: US)
  Receive Date: 20180403
  Receipt Date: 20180516
  Transmission Date: 20180711
  Serious: Yes (Hospitalization)
  Sender: FDA-Public Use
  Company Number: US-MERZ NORTH AMERICA, INC.-18MRZ-00132

PATIENT
  Sex: Male

DRUGS (1)
  1. XEOMIN [Suspect]
     Active Substance: INCOBOTULINUMTOXINA
     Indication: SKIN WRINKLING
     Dosage: 24 UNITS TO CROW^S FEET
     Dates: start: 20180307, end: 20180307

REACTIONS (7)
  - Somnolence [Recovered/Resolved]
  - Extraocular muscle paresis [Recovered/Resolved]
  - Eyelid ptosis [Recovered/Resolved]
  - Diplopia [Recovered/Resolved]
  - Visual impairment [Recovered/Resolved]
  - Balance disorder [Recovered/Resolved]
  - Asthenopia [Recovered/Resolved]
